FAERS Safety Report 5218459-9 (Version None)
Quarter: 2007Q1

REPORT INFORMATION
  Report Type: 
  Country: None (occurrence: None)
  Receive Date: 20070123
  Receipt Date: 20070123
  Transmission Date: 20070707
  Serious: Yes (Life-Threatening, Hospitalization)
  Sender: FDA-Public Use
  Company Number: None

PATIENT
  Age: 80 Year
  Sex: Female

DRUGS (2)
  1. FENTANYL CITRATE [Suspect]
     Indication: GENERAL ANAESTHESIA
     Dosage: 50MCG GIVEN TWICE IV
     Route: 042
     Dates: start: 20070118
  2. MIDAZOLAM HCL [Suspect]
     Indication: GENERAL ANAESTHESIA
     Dosage: 1MG GIVEN TWICE IV
     Route: 042
     Dates: start: 20070118

REACTIONS (4)
  - BLOOD PRESSURE DIASTOLIC DECREASED [None]
  - HEART RATE INCREASED [None]
  - OXYGEN SATURATION DECREASED [None]
  - RESPIRATORY RATE INCREASED [None]
